FAERS Safety Report 9217980 (Version 6)
Quarter: 2016Q4

REPORT INFORMATION
  Report Type: Report from Study
  Country: BR (occurrence: BR)
  Receive Date: 20130408
  Receipt Date: 20161212
  Transmission Date: 20170207
  Serious: Yes (Hospitalization, Other)
  Sender: FDA-Public Use
  Company Number: BR-ROCHE-1071923

PATIENT
  Age: 56 Year
  Sex: Female
  Weight: 88 kg

DRUGS (14)
  1. MABTHERA [Suspect]
     Active Substance: RITUXIMAB
     Indication: RHEUMATOID ARTHRITIS
     Route: 042
     Dates: start: 201009
  2. MABTHERA [Suspect]
     Active Substance: RITUXIMAB
     Route: 042
     Dates: start: 20090901
  3. ACTEMRA [Suspect]
     Active Substance: TOCILIZUMAB
     Route: 042
     Dates: start: 20130118
  4. CALCORT [Suspect]
     Active Substance: DEFLAZACORT
     Indication: RHEUMATOID ARTHRITIS
     Route: 048
     Dates: start: 20130626
  5. METHOTREXATE. [Suspect]
     Active Substance: METHOTREXATE
     Indication: PRODUCT USED FOR UNKNOWN INDICATION
     Route: 065
  6. FLOTAC (BRAZIL) [Concomitant]
     Indication: PREMEDICATION
     Route: 048
  7. PRESS PLUS [Concomitant]
     Indication: HYPERTENSION
  8. LANSOPRAZOLE. [Concomitant]
     Active Substance: LANSOPRAZOLE
  9. PARACETAMOL [Concomitant]
     Active Substance: ACETAMINOPHEN
     Indication: PREMEDICATION
     Dosage: 3 TABLETS
     Route: 065
  10. CALCORT [Suspect]
     Active Substance: DEFLAZACORT
     Route: 048
  11. ACTEMRA [Suspect]
     Active Substance: TOCILIZUMAB
     Indication: RHEUMATOID ARTHRITIS
     Dosage: LATEST INFUSION WAS ON 1/10/2016
     Route: 042
     Dates: end: 20130118
  12. LEFLUNOMIDE. [Suspect]
     Active Substance: LEFLUNOMIDE
     Indication: PRODUCT USED FOR UNKNOWN INDICATION
     Route: 065
  13. LANSOPRAZOLE. [Concomitant]
     Active Substance: LANSOPRAZOLE
     Indication: PROPHYLAXIS
     Route: 048
  14. SYNTHROID [Concomitant]
     Active Substance: LEVOTHYROXINE SODIUM
     Indication: HYPOTHYROIDISM

REACTIONS (27)
  - Arthropathy [Not Recovered/Not Resolved]
  - Throat irritation [Recovered/Resolved]
  - Infection [Unknown]
  - Gait disturbance [Unknown]
  - Soft tissue haemorrhage [Unknown]
  - Nasopharyngitis [Unknown]
  - Allergy to chemicals [Unknown]
  - Condition aggravated [Unknown]
  - Joint injury [Not Recovered/Not Resolved]
  - Hypersensitivity [Recovered/Resolved]
  - Migraine [Recovered/Resolved]
  - Blood pressure fluctuation [Unknown]
  - Abscess [Unknown]
  - Pain [Recovered/Resolved]
  - Therapeutic response decreased [Unknown]
  - Thyroid disorder [Recovered/Resolved]
  - Device dislocation [Recovered/Resolved with Sequelae]
  - Chills [Recovered/Resolved]
  - Skin disorder [Unknown]
  - Skin discolouration [Recovered/Resolved]
  - Erythema [Recovered/Resolved]
  - Medical device removal [Recovered/Resolved]
  - Pain [Unknown]
  - Gastrointestinal disorder [Recovered/Resolved]
  - Blood pressure decreased [Unknown]
  - Immunodeficiency [Unknown]
  - Cellulitis [Recovered/Resolved]

NARRATIVE: CASE EVENT DATE: 201207
